FAERS Safety Report 14000587 (Version 2)
Quarter: 2017Q4

REPORT INFORMATION
  Report Type: Spontaneous
  Country: None (occurrence: US)
  Receive Date: 20170922
  Receipt Date: 20171013
  Transmission Date: 20180321
  Serious: Yes (Other)
  Sender: FDA-Public Use
  Company Number: US-SPEAR PHARMACEUTICALS-2027340

PATIENT
  Sex: Male

DRUGS (1)
  1. FLUOROURACIL. [Suspect]
     Active Substance: FLUOROURACIL
     Indication: ACTINIC KERATOSIS
     Route: 061
     Dates: start: 20170113, end: 20170115

REACTIONS (4)
  - Scab [Recovered/Resolved]
  - Infection [Recovered/Resolved]
  - Impetigo [None]
  - Blister [Recovered/Resolved]
